FAERS Safety Report 5310980-8 (Version None)
Quarter: 2007Q2

REPORT INFORMATION
  Report Type: 
  Country: None (occurrence: None)
  Receive Date: 20070430
  Receipt Date: 20070418
  Transmission Date: 20071010
  Serious: Yes (Hospitalization)
  Sender: FDA-Public Use
  Company Number: US-JNJFOC-20070404379

PATIENT
  Sex: Female

DRUGS (23)
  1. FENTANYL [Suspect]
     Indication: PAIN
     Dosage: BATCH NUMBER: 0622116, EXPIRY DATE: JUL-2008
     Route: 062
  2. DURAGESIC-100 [Suspect]
     Route: 062
  3. DURAGESIC-100 [Suspect]
     Indication: PAIN
     Route: 062
  4. SPIRONOLACTONE [Suspect]
     Indication: HYPERTENSION
     Route: 048
  5. POTASSIUM ACETATE [Suspect]
     Indication: DRUG USE FOR UNKNOWN INDICATION
     Route: 048
  6. MOBIC [Suspect]
     Indication: PAIN
     Route: 048
  7. NEURONTIN [Concomitant]
     Indication: NEURALGIA
     Route: 048
  8. PRILOSEC [Concomitant]
     Indication: GASTROOESOPHAGEAL REFLUX DISEASE
     Route: 048
  9. PAXIL [Concomitant]
     Indication: DEPRESSION
     Route: 048
  10. METOPROLOL SUCCINATE [Concomitant]
     Indication: HYPERTENSION
     Route: 048
  11. LISINOPRIL [Concomitant]
     Indication: HYPERTENSION
     Route: 048
  12. HYDROCHLOROTHIAZIDE [Concomitant]
     Indication: HYPERTENSION
     Route: 048
  13. LEVOTHROID [Concomitant]
     Indication: THYROID DISORDER
     Route: 048
  14. ASPIRIN [Concomitant]
     Indication: ANTICOAGULANT THERAPY
     Route: 048
  15. REMERON [Concomitant]
     Indication: SLEEP DISORDER
     Route: 048
  16. GLIPIZIDE [Concomitant]
     Indication: DIABETES MELLITUS NON-INSULIN-DEPENDENT
     Route: 048
  17. SIMVASTATIN [Concomitant]
     Indication: BLOOD CHOLESTEROL INCREASED
     Route: 048
  18. HALCION [Concomitant]
     Indication: SLEEP DISORDER
     Route: 048
  19. KLONOPIN [Concomitant]
     Route: 048
  20. KLONOPIN [Concomitant]
     Indication: ANXIETY
     Route: 048
  21. PREDNISONE TAB [Concomitant]
     Indication: PAIN
     Route: 048
  22. DILAUDID [Concomitant]
     Indication: BREAKTHROUGH PAIN
     Route: 048
  23. FLUTICASONE PROPIONATE [Concomitant]
     Indication: MULTIPLE ALLERGIES
     Route: 045

REACTIONS (26)
  - ALOPECIA [None]
  - BACK PAIN [None]
  - BLOOD POTASSIUM INCREASED [None]
  - BLOOD PRESSURE INCREASED [None]
  - BLOOD URINE PRESENT [None]
  - BRONCHITIS [None]
  - DECREASED ACTIVITY [None]
  - DEPRESSION [None]
  - DYSPNOEA [None]
  - FEELINGS OF WORTHLESSNESS [None]
  - FLANK PAIN [None]
  - GAIT DISTURBANCE [None]
  - HYPOAESTHESIA [None]
  - INTERVERTEBRAL DISC PROTRUSION [None]
  - MIGRAINE [None]
  - MONOPLEGIA [None]
  - MOVEMENT DISORDER [None]
  - PAIN IN EXTREMITY [None]
  - PROCEDURAL COMPLICATION [None]
  - PYREXIA [None]
  - RENAL FAILURE [None]
  - SENSATION OF HEAVINESS [None]
  - SINUSITIS [None]
  - SPINAL FRACTURE [None]
  - VIRAL INFECTION [None]
  - WEIGHT INCREASED [None]
